FAERS Safety Report 6574142-9 (Version None)
Quarter: 2010Q1

REPORT INFORMATION
  Report Type: 
  Country: None (occurrence: None)
  Receive Date: 20100208
  Receipt Date: 20100203
  Transmission Date: 20100710
  Serious: Yes (Hospitalization, Disabling)
  Sender: FDA-Public Use
  Company Number: HR-ROCHE-674413

PATIENT
  Sex: Male
  Weight: 73.2 kg

DRUGS (11)
  1. METHOXY POLYETHYLENE GLYCOL-EPOETIN BETA [Suspect]
     Route: 058
     Dates: start: 20090608
  2. METHOXY POLYETHYLENE GLYCOL-EPOETIN BETA [Suspect]
     Dosage: LAST DOSE PRIOR TO SAE: 07 DECEMBER 2009
     Route: 058
  3. CALCIUM CARBONATE [Concomitant]
     Dates: start: 20080630
  4. CARVEDILOL [Concomitant]
     Dates: start: 20090531
  5. AMLODIPINE [Concomitant]
     Dates: start: 20071005
  6. ISOSORBIDE MONONITRATE [Concomitant]
     Dates: start: 20070730
  7. LISINOPRIL [Concomitant]
     Dates: start: 20071005
  8. PANTOPRAZOL [Concomitant]
     Dates: start: 20090123
  9. CALCITRIOL [Concomitant]
     Dates: start: 20080516
  10. FOLIC ACID [Concomitant]
     Dates: start: 20090814
  11. GLIQUIDONE [Concomitant]
     Dates: start: 20070915

REACTIONS (4)
  - ARTERIOVENOUS FISTULA THROMBOSIS [None]
  - CEREBROVASCULAR ACCIDENT [None]
  - FEMORAL ARTERY OCCLUSION [None]
  - PERIPHERAL ARTERIAL OCCLUSIVE DISEASE [None]
